FAERS Safety Report 6795957-8 (Version None)
Quarter: 2010Q2

REPORT INFORMATION
  Report Type: 
  Country: None (occurrence: None)
  Receive Date: 20100625
  Receipt Date: 20100621
  Transmission Date: 20101027
  Serious: Yes (Other)
  Sender: FDA-Public Use
  Company Number: B0661963A

PATIENT
  Age: 15 Year
  Sex: Female

DRUGS (2)
  1. SERETIDE [Suspect]
     Indication: ASTHMA
     Dosage: 2PUFF TWICE PER DAY
     Route: 055
     Dates: start: 20100401
  2. VENTOLIN [Concomitant]
     Route: 055

REACTIONS (2)
  - ASTHMA [None]
  - EXPIRED DRUG ADMINISTERED [None]
